FAERS Safety Report 4945279-2 (Version None)
Quarter: 2006Q1

REPORT INFORMATION
  Report Type: 
  Country: None (occurrence: None)
  Receive Date: 20060315
  Receipt Date: 20060315
  Transmission Date: 20060701
  Serious: Yes (Other)
  Sender: FDA-Public Use
  Company Number: None

PATIENT
  Sex: Female
  Weight: 107.9561 kg

DRUGS (1)
  1. LEVEMIR [Suspect]
     Indication: GESTATIONAL DIABETES
     Dosage: 6U QHS SQ
     Route: 058
     Dates: start: 20060220, end: 20060223

REACTIONS (5)
  - ERYTHEMA [None]
  - INDURATION [None]
  - INFECTION [None]
  - LOCAL REACTION [None]
  - SKIN WARM [None]
